FAERS Safety Report 21227184 (Version 1)
Quarter: 2022Q3

REPORT INFORMATION
  Report Type: Other
  Country: DE (occurrence: DE)
  Receive Date: 20220818
  Receipt Date: 20220818
  Transmission Date: 20221027
  Serious: Yes (Death, Other)
  Sender: FDA-Public Use
  Company Number: DE-MACLEODS PHARMACEUTICALS US LTD-MAC2022036820

PATIENT

DRUGS (3)
  1. CLOPIDOGREL [Suspect]
     Active Substance: CLOPIDOGREL BISULFATE
     Indication: Stent placement
     Dosage: 75 MILLIGRAM, QD
     Route: 048
     Dates: start: 20220610, end: 20220704
  2. CLOPIDOGREL [Suspect]
     Active Substance: CLOPIDOGREL BISULFATE
     Dosage: 75 MILLIGRAM, QD
     Route: 048
     Dates: start: 20220622
  3. SIMVASTATIN [Suspect]
     Active Substance: SIMVASTATIN
     Indication: Lipid metabolism disorder
     Dosage: 40 MILLIGRAM, QD
     Route: 048
     Dates: end: 20220630

REACTIONS (3)
  - Rhabdomyolysis [Fatal]
  - Condition aggravated [Unknown]
  - Cardiopulmonary failure [Unknown]

NARRATIVE: CASE EVENT DATE: 20220630
